FAERS Safety Report 5251286-5 (Version None)
Quarter: 2007Q1

REPORT INFORMATION
  Report Type: 
  Country: None (occurrence: None)
  Receive Date: 20070228
  Receipt Date: 20061229
  Transmission Date: 20070707
  Serious: No
  Sender: FDA-Public Use
  Company Number: US-GLAXOSMITHKLINE-A0632844A

PATIENT
  Age: 62 Year
  Sex: Male

DRUGS (12)
  1. LAMICTAL [Suspect]
     Indication: DRUG USE FOR UNKNOWN INDICATION
     Dosage: 25MG SEE DOSAGE TEXT
     Route: 048
     Dates: start: 20061208
  2. CARTIA XT [Concomitant]
  3. PREVACID [Concomitant]
  4. LIPITOR [Concomitant]
  5. ASPIRIN [Concomitant]
  6. AMIODARONE HYDROCHLORIDE [Concomitant]
  7. NORVASC [Concomitant]
  8. XANAX [Concomitant]
  9. VITAMIN [Concomitant]
  10. MILK OF MAGNESIA [Concomitant]
  11. METAMUCIL [Concomitant]
  12. UNSPECIFIED MEDICATION [Concomitant]

REACTIONS (1)
  - RASH [None]
